FAERS Safety Report 13990313 (Version 8)
Quarter: 2017Q4

REPORT INFORMATION
  Report Type: Report from Study
  Country: US (occurrence: US)
  Receive Date: 20170920
  Receipt Date: 20171213
  Transmission Date: 20180321
  Serious: Yes (Other)
  Sender: FDA-Public Use
  Company Number: US-AMGEN-USASL2017141729

PATIENT
  Age: 57 Year
  Sex: Female

DRUGS (1)
  1. ENBREL [Suspect]
     Active Substance: ETANERCEPT
     Indication: RHEUMATOID ARTHRITIS
     Dosage: 50 MG, QWK
     Route: 065
     Dates: start: 2017

REACTIONS (10)
  - Mobility decreased [Unknown]
  - Ear infection [Recovering/Resolving]
  - Arthralgia [Unknown]
  - Sleep disorder [Unknown]
  - Pain in extremity [Unknown]
  - Rheumatoid arthritis [Recovering/Resolving]
  - Product storage error [Unknown]
  - Myalgia [Unknown]
  - Muscle contractions involuntary [Unknown]
  - Drug effect incomplete [Unknown]

NARRATIVE: CASE EVENT DATE: 2017
